FAERS Safety Report 7320421-7 (Version None)
Quarter: 2011Q1

REPORT INFORMATION
  Report Type: 
  Country: None (occurrence: None)
  Receive Date: 20110228
  Receipt Date: 20110222
  Transmission Date: 20110831
  Serious: Yes (Hospitalization)
  Sender: FDA-Public Use
  Company Number: A0904954A

PATIENT
  Age: 82 Year
  Sex: Female

DRUGS (4)
  1. DIOVAN [Concomitant]
  2. PROPRANOLOL [Concomitant]
  3. ADVAIR DISKUS 100/50 [Suspect]
     Dosage: 1PUFF PER DAY
     Route: 055
     Dates: start: 20100601
  4. PREDNISONE [Concomitant]

REACTIONS (6)
  - URINARY TRACT INFECTION [None]
  - DRUG ADMINISTRATION ERROR [None]
  - CHOKING [None]
  - INHALATION THERAPY [None]
  - PRODUCT QUALITY ISSUE [None]
  - DYSPNOEA [None]
